FAERS Safety Report 8068489-7 (Version None)
Quarter: 2012Q1

REPORT INFORMATION
  Report Type: 
  Country: None (occurrence: None)
  Receive Date: 20120124
  Receipt Date: 20111031
  Transmission Date: 20120608
  Serious: No
  Sender: FDA-Public Use
  Company Number: US-AMGEN-USASP2011056339

PATIENT
  Age: 86 Year
  Sex: Female

DRUGS (8)
  1. CELEBREX [Concomitant]
  2. MULTIVITAMIN                       /00097801/ [Concomitant]
  3. NORVASC [Concomitant]
  4. VITAMIN D [Concomitant]
  5. VITAMIN C                          /00008001/ [Concomitant]
  6. PROLIA [Suspect]
     Indication: OSTEOPOROSIS POSTMENOPAUSAL
     Dosage: 60 MG, Q6MO
     Dates: start: 20110101
  7. CALCIUM [Concomitant]
  8. PROCARDIA [Concomitant]

REACTIONS (3)
  - BACK PAIN [None]
  - PRURITUS [None]
  - ERYTHEMA [None]
